FAERS Safety Report 6461835-7 (Version None)
Quarter: 2009Q4

REPORT INFORMATION
  Report Type: 
  Country: None (occurrence: None)
  Receive Date: 20091130
  Receipt Date: 20091124
  Transmission Date: 20100525
  Serious: Yes (Hospitalization)
  Sender: FDA-Public Use
  Company Number: FR-MERCK-0911FRA00082

PATIENT
  Age: 48 Year
  Sex: Male

DRUGS (13)
  1. COZAAR [Suspect]
     Indication: HYPERTENSION
     Route: 048
     Dates: start: 20090907
  2. SULFAMETHOXAZOLE AND TRIMETHOPRIM [Suspect]
     Route: 048
     Dates: start: 20090827, end: 20090918
  3. ACETAMINOPHEN [Suspect]
     Route: 048
     Dates: start: 20090907, end: 20090921
  4. FUROSEMIDE [Suspect]
     Route: 048
     Dates: start: 20090827, end: 20090912
  5. NICARDIPINE HYDROCHLORIDE [Suspect]
     Route: 048
     Dates: start: 20090827, end: 20090907
  6. HEPARIN CALCIUM [Suspect]
     Route: 058
     Dates: start: 20090821, end: 20090903
  7. RAMIPRIL [Suspect]
     Route: 048
     Dates: start: 20090827
  8. ACEBUTOLOL HYDROCHLORIDE [Suspect]
     Route: 048
     Dates: start: 20090827
  9. AMLODIPINE BESYLATE [Suspect]
     Route: 048
     Dates: start: 20090907
  10. OMEPRAZOLE [Suspect]
     Route: 048
     Dates: start: 20090827
  11. URAPIDIL [Suspect]
     Route: 048
     Dates: start: 20090827
  12. CALCIUM CARBONATE [Suspect]
     Route: 048
     Dates: start: 20090827
  13. BROMAZEPAM [Concomitant]
     Route: 048

REACTIONS (1)
  - EOSINOPHILIA [None]
